FAERS Safety Report 8982957 (Version 2)
Quarter: 2012Q4

REPORT INFORMATION
  Report Type: 
  Country: CA (occurrence: CA)
  Receive Date: 20121224
  Receipt Date: 20121224
  Transmission Date: 20130627
  Serious: Yes (Death, Hospitalization)
  Sender: FDA-Public Use
  Company Number: PHHY2012CA116564

PATIENT
  Sex: Female

DRUGS (2)
  1. GLIVEC [Suspect]
     Indication: CHRONIC MYELOID LEUKAEMIA
     Dosage: UNK
     Route: 048
     Dates: start: 201202, end: 201204
  2. GLIVEC [Suspect]
     Dosage: UNK

REACTIONS (6)
  - Death [Fatal]
  - Stevens-Johnson syndrome [Unknown]
  - Skin exfoliation [Unknown]
  - Swelling [Unknown]
  - Weight decreased [Unknown]
  - Abdominal pain upper [Unknown]
